FAERS Safety Report 8303132-0 (Version None)
Quarter: 2012Q2

REPORT INFORMATION
  Report Type: 
  Country: None (occurrence: None)
  Receive Date: 20120423
  Receipt Date: 20120412
  Transmission Date: 20120825
  Serious: Yes (Hospitalization)
  Sender: FDA-Public Use
  Company Number: DE-BIOGENIDEC-2012BI012851

PATIENT
  Age: 55 Year
  Sex: Female

DRUGS (6)
  1. TYSABRI [Suspect]
     Indication: MULTIPLE SCLEROSIS
     Route: 042
     Dates: start: 20080904, end: 20101109
  2. GABAPENTIN [Concomitant]
  3. NSAIDS [Concomitant]
  4. ENOXAPARIN SODIUM [Concomitant]
  5. PANTOPRAZOLE [Concomitant]
  6. ANITDEPRESSANT (NOS) [Concomitant]

REACTIONS (2)
  - BORDERLINE OVARIAN TUMOUR [None]
  - OVARIAN ADENOMA [None]
